FAERS Safety Report 6265685-6 (Version None)
Quarter: 2009Q3

REPORT INFORMATION
  Report Type: 
  Country: None (occurrence: None)
  Receive Date: 20090713
  Receipt Date: 20090702
  Transmission Date: 20100115
  Serious: Yes (Other)
  Sender: FDA-Public Use
  Company Number: GB-PFIZER INC-2009235151

PATIENT
  Age: 96 Year

DRUGS (4)
  1. DOXYCYCLINE HYCLATE [Suspect]
     Indication: COUGH
     Dosage: UNK
     Dates: start: 20090408, end: 20090408
  2. ALPHADERM [Concomitant]
     Dosage: 1 DF, 2X/DAY
     Route: 061
  3. PARAFFIN SOFT [Concomitant]
     Route: 061
  4. MELOXICAM [Concomitant]
     Dosage: 7.5 MG, 1X/DAY

REACTIONS (4)
  - DIARRHOEA [None]
  - DIZZINESS [None]
  - NAUSEA [None]
  - PYREXIA [None]
